FAERS Safety Report 5423565-X (Version None)
Quarter: 2007Q3

REPORT INFORMATION
  Report Type: 
  Country: None (occurrence: None)
  Receive Date: 20070821
  Receipt Date: 20070821
  Transmission Date: 20080115
  Serious: Yes (Hospitalization)
  Sender: FDA-Public Use
  Company Number: None

PATIENT
  Age: 49 Year
  Sex: Female
  Weight: 57.6068 kg

DRUGS (4)
  1. OXALIPLATIN [Suspect]
     Indication: RECTAL CANCER
     Dosage: 40MG/M2
     Dates: start: 20070309, end: 20070516
  2. BEVACIZUMAB [Suspect]
     Indication: RECTAL CANCER
     Dosage: 5MG/KG
     Dates: start: 20070309, end: 20070516
  3. LEUCOVORIN CALCIUM [Suspect]
     Indication: RECTAL CANCER
     Dosage: 400MG/M2
     Dates: start: 20070309, end: 20070323
  4. FLUOROURACIL [Suspect]
     Indication: RECTAL CANCER
     Dosage: 200MG/M2
     Dates: start: 20070309, end: 20070516

REACTIONS (2)
  - ANASTOMOTIC LEAK [None]
  - RECTAL ABSCESS [None]
